FAERS Safety Report 22003969 (Version 1)
Quarter: 2023Q1

REPORT INFORMATION
  Report Type: Spontaneous
  Country: US (occurrence: US)
  Receive Date: 20230217
  Receipt Date: 20230217
  Transmission Date: 20230418
  Serious: Yes (Other)
  Sender: FDA-Public Use
  Company Number: US-002147023-NVSC2023US033095

PATIENT
  Sex: Female
  Weight: 96.16 kg

DRUGS (1)
  1. COSENTYX [Suspect]
     Active Substance: SECUKINUMAB
     Indication: Psoriasis
     Dosage: 300 MG, QMO (EVERY 4 WEEKS)
     Route: 058

REACTIONS (6)
  - Pneumonitis [Unknown]
  - Dyspnoea [Unknown]
  - Wheezing [Unknown]
  - COVID-19 [Unknown]
  - Psoriasis [Unknown]
  - Skin lesion [Unknown]

NARRATIVE: CASE EVENT DATE: 20200101
